FAERS Safety Report 11127265 (Version 1)
Quarter: 2015Q2

REPORT INFORMATION
  Report Type: Spontaneous
  Country: US (occurrence: None)
  Receive Date: 20150520
  Receipt Date: 20150520
  Transmission Date: 20150821
  Serious: Yes (Disabling)
  Sender: FDA-Public Use
  Company Number: None

PATIENT
  Age: 51 Year
  Sex: Female
  Weight: 77.11 kg

DRUGS (4)
  1. TAMOXIFEN [Concomitant]
     Active Substance: TAMOXIFEN
  2. METROPOLOL [Concomitant]
     Active Substance: METOPROLOL
  3. ALCALINE WATER [Concomitant]
  4. MICARDIS [Suspect]
     Active Substance: TELMISARTAN
     Indication: HYPERTENSION
     Dosage: 1 PILL ONCE DAILY TAKEN BY MOUTH
     Route: 048
     Dates: start: 20150508

REACTIONS (6)
  - Product quality issue [None]
  - Jaw disorder [None]
  - Product substitution issue [None]
  - Dizziness [None]
  - Headache [None]
  - Paraesthesia [None]

NARRATIVE: CASE EVENT DATE: 20150508
